FAERS Safety Report 7193350-X (Version None)
Quarter: 2010Q4

REPORT INFORMATION
  Report Type: 
  Country: None (occurrence: None)
  Receive Date: 20101223
  Receipt Date: 20101130
  Transmission Date: 20110411
  Serious: Yes (Other)
  Sender: FDA-Public Use
  Company Number: US-BAYER-2010-001015

PATIENT
  Sex: Male

DRUGS (4)
  1. ASPIRIN [Suspect]
     Indication: STENT PLACEMENT
     Dosage: 81 MG, BID
     Route: 065
     Dates: start: 20070101
  2. TOPROL-XL [Concomitant]
     Dosage: UNK
  3. SIMVASTATIN [Concomitant]
     Dosage: UNK
  4. PLAVIX [Concomitant]

REACTIONS (2)
  - GASTRIC ULCER [None]
  - GASTROOESOPHAGEAL REFLUX DISEASE [None]
